FAERS Safety Report 23588223 (Version 1)
Quarter: 2024Q1

REPORT INFORMATION
  Report Type: Spontaneous
  Country: GB (occurrence: GB)
  Receive Date: 20240302
  Receipt Date: 20240302
  Transmission Date: 20240410
  Serious: Yes (Other)
  Sender: FDA-Public Use
  Company Number: None

PATIENT
  Age: 81 Year

DRUGS (12)
  1. RANOLAZINE [Suspect]
     Active Substance: RANOLAZINE
     Route: 065
  2. CHOLECALCIFEROL [Concomitant]
     Active Substance: CHOLECALCIFEROL
     Dosage: FULTIUM-D3,  LONG TERM FOR BONES
  3. EDOXABAN [Concomitant]
     Active Substance: EDOXABAN
  4. BISOPROLOL [Concomitant]
     Active Substance: BISOPROLOL\BISOPROLOL FUMARATE
     Dosage: EACH MORNING,
  5. LANSOPRAZOLE [Concomitant]
     Active Substance: LANSOPRAZOLE
     Dosage: EACH MORNING,
  6. RAMIPRIL [Concomitant]
     Active Substance: RAMIPRIL
     Indication: Blood pressure measurement
  7. LEVOTHYROXINE [Concomitant]
     Active Substance: LEVOTHYROXINE\LEVOTHYROXINE SODIUM
     Dosage: EACH MORNING AT LEAST 30 MINUTES BEFORE BREAKFAST,
  8. CAFFEINE [Concomitant]
     Active Substance: CAFFEINE
     Dosage: CAFFEINE-CONTAINING DRINKS OR OTHER MEDICATION 28 TABLET
  9. ATORVASTATIN [Concomitant]
     Active Substance: ATORVASTATIN
  10. CITALOPRAM [Suspect]
     Active Substance: CITALOPRAM HYDROBROMIDE
     Route: 065
  11. ESCITALOPRAM [Concomitant]
     Active Substance: ESCITALOPRAM OXALATE
  12. NITROFURANTOIN [Concomitant]
     Active Substance: NITROFURANTOIN
     Dosage: 100MG M/R BD FOR 3/7 (POD- 6 CAPSULES)

REACTIONS (1)
  - Electrocardiogram QT prolonged [Recovered/Resolved]
